FAERS Safety Report 17162855 (Version 1)
Quarter: 2019Q4

REPORT INFORMATION
  Report Type: Report from Study
  Country: IT (occurrence: IT)
  Receive Date: 20191217
  Receipt Date: 20191217
  Transmission Date: 20200122
  Serious: Yes (Other)
  Sender: FDA-Public Use
  Company Number: IT-ACCORD-165811

PATIENT
  Age: 67 Year
  Sex: Female

DRUGS (3)
  1. AMLODIPINE [Suspect]
     Active Substance: AMLODIPINE BESYLATE
     Indication: HYPERTENSION
     Route: 048
     Dates: start: 20180424
  2. COAPROVEL [Suspect]
     Active Substance: HYDROCHLOROTHIAZIDE\IRBESARTAN
     Indication: HYPERTENSION
     Dosage: STRENGTH:300 MG / 25 MG
     Route: 048
     Dates: start: 20180424
  3. CARDIOASPIRIN [Concomitant]
     Active Substance: ASPIRIN
     Dosage: STRENGTH:100 MG

REACTIONS (2)
  - Drug ineffective [Unknown]
  - Hypertensive crisis [Recovering/Resolving]

NARRATIVE: CASE EVENT DATE: 20190725
